FAERS Safety Report 5004854-X (Version None)
Quarter: 2006Q2

REPORT INFORMATION
  Report Type: 
  Country: None (occurrence: None)
  Receive Date: 20060517
  Receipt Date: 20050609
  Transmission Date: 20061013
  Serious: Yes (Hospitalization, Disabling, Other)
  Sender: FDA-Public Use
  Company Number: US-MERCK-0506USA01568

PATIENT
  Age: 60 Year
  Sex: Female
  Weight: 90 kg

DRUGS (7)
  1. VIOXX [Suspect]
     Indication: BACK PAIN
     Route: 048
     Dates: start: 20000101, end: 20040930
  2. VIOXX [Suspect]
     Route: 048
     Dates: start: 20000101, end: 20040930
  3. VIOXX [Suspect]
     Indication: MIGRAINE
     Route: 048
     Dates: start: 20000101, end: 20040930
  4. VIOXX [Suspect]
     Route: 048
     Dates: start: 20000101, end: 20040930
  5. PREMARIN [Concomitant]
     Indication: HORMONE REPLACEMENT THERAPY
     Route: 065
     Dates: start: 19960101, end: 20020101
  6. DARVOCET-N 100 [Concomitant]
     Route: 065
  7. VICODIN [Concomitant]
     Route: 065

REACTIONS (31)
  - ABDOMINAL PAIN [None]
  - ANEURYSM [None]
  - ANXIETY [None]
  - AORTIC ARTERIOSCLEROSIS [None]
  - ARTERIOSCLEROSIS [None]
  - ATRIAL SEPTAL DEFECT [None]
  - BACK DISORDER [None]
  - CARDIAC DISORDER [None]
  - CEREBRAL INFARCTION [None]
  - CEREBRAL ISCHAEMIA [None]
  - CEREBROVASCULAR ACCIDENT [None]
  - CHEST PAIN [None]
  - CORONARY ARTERY DISEASE [None]
  - CYSTITIS [None]
  - DEPRESSION [None]
  - DIARRHOEA [None]
  - DIZZINESS [None]
  - DRUG SCREEN POSITIVE [None]
  - FALL [None]
  - GASTROENTERITIS [None]
  - JOINT SPRAIN [None]
  - LOSS OF CONSCIOUSNESS [None]
  - MENTAL STATUS CHANGES [None]
  - MITRAL VALVE INCOMPETENCE [None]
  - MITRAL VALVE PROLAPSE [None]
  - OVERDOSE [None]
  - PANIC DISORDER [None]
  - SLEEP APNOEA SYNDROME [None]
  - THROMBOSIS [None]
  - TRICUSPID VALVE INCOMPETENCE [None]
  - URINARY TRACT INFECTION [None]
